FAERS Safety Report 25553559 (Version 1)
Quarter: 2025Q3

REPORT INFORMATION
  Report Type: Spontaneous
  Country: US (occurrence: US)
  Receive Date: 20250715
  Receipt Date: 20250715
  Transmission Date: 20251020
  Serious: No
  Sender: TAKEDA
  Company Number: US-TAKEDA-2025TUS061272

PATIENT
  Age: 34 Year
  Sex: Male
  Weight: 81 kg

DRUGS (1)
  1. ENTYVIO [Suspect]
     Active Substance: VEDOLIZUMAB
     Indication: Proctitis ulcerative
     Dosage: 300 MILLIGRAM, Q4WEEKS
     Dates: start: 202409

REACTIONS (3)
  - No adverse event [Unknown]
  - Product storage error [Unknown]
  - Off label use [Unknown]
